FAERS Safety Report 17804667 (Version 14)
Quarter: 2021Q3

REPORT INFORMATION
  Report Type: Report from Study
  Country: EG (occurrence: EG)
  Receive Date: 20200519
  Receipt Date: 20210820
  Transmission Date: 20211014
  Serious: Yes (Hospitalization, Other)
  Sender: FDA-Public Use
  Company Number: EG-SEATTLE GENETICS-2020SGN02191

PATIENT
  Sex: Female

DRUGS (1)
  1. BRENTUXIMAB VEDOTIN [Suspect]
     Active Substance: BRENTUXIMAB VEDOTIN
     Indication: HODGKIN^S DISEASE REFRACTORY
     Dosage: UNK, Q3WEEKS
     Route: 042
     Dates: start: 20200425

REACTIONS (10)
  - Pyrexia [Recovered/Resolved]
  - Tooth infection [Unknown]
  - Renal impairment [Unknown]
  - Bronchitis [Unknown]
  - Gastric infection [Recovered/Resolved]
  - Hepatic enzyme increased [Not Recovered/Not Resolved]
  - Cardiac disorder [Unknown]
  - Neuropathy peripheral [Unknown]
  - Sepsis [Recovered/Resolved]
  - COVID-19 [Unknown]
